FAERS Safety Report 22242928 (Version 1)
Quarter: 2023Q2

REPORT INFORMATION
  Report Type: Spontaneous
  Country: US (occurrence: US)
  Receive Date: 20230424
  Receipt Date: 20230424
  Transmission Date: 20230722
  Serious: Yes (Hospitalization, Other)
  Sender: FDA-Public Use
  Company Number: US-ROCHE-2413004

PATIENT
  Sex: Male

DRUGS (3)
  1. VALGANCICLOVIR HYDROCHLORIDE [Suspect]
     Active Substance: VALGANCICLOVIR HYDROCHLORIDE
     Indication: Liver transplant
     Dosage: 450MG TAB 2 TABS QD?DAILY DOSE: 900 MILLIGRAM
     Route: 048
  2. VALGANCICLOVIR HYDROCHLORIDE [Suspect]
     Active Substance: VALGANCICLOVIR HYDROCHLORIDE
     Indication: Liver transplant
     Dosage: 1 TABLET PO BID?DAILY DOSE: 900 MILLIGRAM
     Route: 048
  3. CELLCEPT [Suspect]
     Active Substance: MYCOPHENOLATE MOFETIL
     Indication: Liver transplant
     Dosage: 2 CAPS PO BID?DAILY DOSE: 4 DOSAGE FORM
     Route: 048

REACTIONS (5)
  - Cytomegalovirus infection [Unknown]
  - Viral load increased [Recovering/Resolving]
  - Diarrhoea [Recovered/Resolved]
  - Product use in unapproved indication [Unknown]
  - Gastric disorder [Unknown]
